FAERS Safety Report 7938042-1 (Version None)
Quarter: 2011Q4

REPORT INFORMATION
  Report Type: 
  Country: None (occurrence: None)
  Receive Date: 20111123
  Receipt Date: 20111116
  Transmission Date: 20120403
  Serious: Yes (Hospitalization)
  Sender: FDA-Public Use
  Company Number: KR-ABBOTT-11P-090-0874747-00

PATIENT
  Age: 64 Year
  Sex: Female

DRUGS (6)
  1. LAMIVUDINE (EPIVIR HBV) [Concomitant]
     Dosage: 300MG DAILY
     Route: 048
     Dates: start: 20100331
  2. KALETRA [Suspect]
     Indication: HIV INFECTION
     Dates: start: 20100317, end: 20100319
  3. KALETRA [Suspect]
     Route: 048
     Dates: start: 20100331, end: 20101118
  4. ABC [Concomitant]
     Indication: ANTIRETROVIRAL THERAPY
     Dosage: 800MG DAILY
     Route: 048
     Dates: start: 20100317, end: 20100319
  5. ABC [Concomitant]
     Dosage: 600MG DAILY
     Route: 048
     Dates: start: 20100331
  6. LAMIVUDINE (EPIVIR HBV) [Concomitant]
     Indication: ANTIRETROVIRAL THERAPY
     Dosage: 300MG DAILY
     Route: 048
     Dates: start: 20100317, end: 20100319

REACTIONS (6)
  - NAUSEA [None]
  - GASTROINTESTINAL DISORDER [None]
  - PRURITUS [None]
  - DEPRESSION [None]
  - ASTHENIA [None]
  - CONJUNCTIVITIS [None]
